FAERS Safety Report 21156994 (Version 3)
Quarter: 2022Q4

REPORT INFORMATION
  Report Type: Report from Study
  Country: US (occurrence: US)
  Receive Date: 20220801
  Receipt Date: 20221004
  Transmission Date: 20230113
  Serious: No
  Sender: FDA-Public Use
  Company Number: US-NOVARTISTESTPH-NVSC2022US172269

PATIENT
  Sex: Male

DRUGS (1)
  1. ENTRESTO [Suspect]
     Active Substance: SACUBITRIL\VALSARTAN
     Indication: Product used for unknown indication
     Dosage: 3 DOSAGE FORM, BID
     Route: 048

REACTIONS (6)
  - Feeling abnormal [Unknown]
  - Ill-defined disorder [Unknown]
  - Weight decreased [Unknown]
  - Blood iron decreased [Unknown]
  - Cough [Unknown]
  - Incorrect dose administered [Unknown]
